FAERS Safety Report 11590614 (Version 1)
Quarter: 2015Q4

REPORT INFORMATION
  Report Type: Spontaneous
  Country: US (occurrence: US)
  Receive Date: 20151002
  Receipt Date: 20151002
  Transmission Date: 20160304
  Serious: Yes (Other)
  Sender: FDA-Public Use
  Company Number: US-BAYER-2015-428304

PATIENT
  Age: 88 Year
  Sex: Female
  Weight: 44.44 kg

DRUGS (2)
  1. CITRACAL MAXIMUM [Suspect]
     Active Substance: CALCIUM CITRATE\CHOLECALCIFEROL
     Dosage: UNK
     Route: 048
  2. BAYER LOW DOSE [Suspect]
     Active Substance: ASPIRIN
     Dosage: UNK

REACTIONS (8)
  - Faeces discoloured [None]
  - Product use issue [None]
  - Foreign body [Recovered/Resolved]
  - Product size issue [None]
  - Haematochezia [None]
  - Throat irritation [Recovered/Resolved]
  - Abnormal faeces [None]
  - Expired product administered [None]
